FAERS Safety Report 6968261-2 (Version None)
Quarter: 2010Q3

REPORT INFORMATION
  Report Type: 
  Country: None (occurrence: None)
  Receive Date: 20100901
  Receipt Date: 20100819
  Transmission Date: 20110219
  Serious: Yes (Hospitalization, Other)
  Sender: FDA-Public Use
  Company Number: APP201000662

PATIENT
  Age: 81 Year
  Sex: Female

DRUGS (1)
  1. ASTRAMORPH PF [Suspect]
     Indication: SPINAL ANAESTHESIA

REACTIONS (2)
  - ARRHYTHMIA [None]
  - HYPOTHERMIA [None]
